FAERS Safety Report 25568744 (Version 1)
Quarter: 2025Q3

REPORT INFORMATION
  Report Type: Spontaneous
  Country: US (occurrence: US)
  Receive Date: 20250716
  Receipt Date: 20250716
  Transmission Date: 20251020
  Serious: No
  Sender: NOVO NORDISK
  Company Number: US-NOVOPROD-1344087

PATIENT
  Age: 26 Year

DRUGS (1)
  1. OZEMPIC [Suspect]
     Active Substance: SEMAGLUTIDE
     Indication: Product used for unknown indication
     Route: 058

REACTIONS (5)
  - Muscle spasms [Unknown]
  - Pain [Unknown]
  - Illness [Unknown]
  - Abdominal pain upper [Unknown]
  - Constipation [Unknown]
